FAERS Safety Report 5700412-X (Version None)
Quarter: 2008Q2

REPORT INFORMATION
  Report Type: 
  Country: None (occurrence: None)
  Receive Date: 20080407
  Receipt Date: 20080324
  Transmission Date: 20081010
  Serious: Yes (Other)
  Sender: FDA-Public Use
  Company Number: 9039997-2006-00002

PATIENT
  Age: 60 Year
  Sex: Male

DRUGS (5)
  1. LEVULAN [Suspect]
     Indication: ACTINIC KERATOSIS
     Dosage: 20%, ONCE, TOPICAL
     Route: 061
     Dates: start: 20060111
  2. COUMADIN [Concomitant]
  3. COREG [Concomitant]
  4. PRAVASTATIN [Concomitant]
  5. LISINOPRIL [Concomitant]

REACTIONS (1)
  - CEREBROVASCULAR ACCIDENT [None]
